FAERS Safety Report 9369865 (Version 1)
Quarter: 2013Q2

REPORT INFORMATION
  Report Type: Spontaneous
  Country: FR (occurrence: FR)
  Receive Date: 20130626
  Receipt Date: 20130626
  Transmission Date: 20140414
  Serious: Yes (Hospitalization)
  Sender: FDA-Public Use
  Company Number: FR-BRISTOL-MYERS SQUIBB COMPANY-19025444

PATIENT
  Age: 63 Year
  Sex: Female

DRUGS (16)
  1. ABILIFY TABS [Suspect]
     Indication: BIPOLAR DISORDER
     Route: 048
  2. CARDENSIEL [Concomitant]
  3. FUROSEMIDE [Concomitant]
  4. ALDACTONE [Concomitant]
  5. COVERSYL [Concomitant]
  6. PREVISCAN [Concomitant]
  7. LEVOTHYROX [Concomitant]
  8. LOXAPAC [Concomitant]
  9. SERESTA [Concomitant]
  10. THERALENE [Concomitant]
  11. DEROXAT [Concomitant]
  12. DEPAKOTE [Concomitant]
  13. ZOPICLONE [Concomitant]
  14. DOLIPRANE [Concomitant]
  15. CALCIDOSE [Concomitant]
  16. TRANSIPEG [Concomitant]

REACTIONS (2)
  - Ventricular arrhythmia [Unknown]
  - Cardiac failure [Unknown]
